FAERS Safety Report 19208676 (Version 2)
Quarter: 2021Q3

REPORT INFORMATION
  Report Type: Report from Study
  Country: GB (occurrence: GB)
  Receive Date: 20210504
  Receipt Date: 20210706
  Transmission Date: 20211014
  Serious: Yes (Other)
  Sender: FDA-Public Use
  Company Number: GB-UCBSA-2020030036

PATIENT
  Age: 62 Year
  Sex: Male

DRUGS (2)
  1. CERTOLIZUMAB PEGOL ASP AUTOCLICKS [Suspect]
     Active Substance: CERTOLIZUMAB PEGOL
     Indication: ANKYLOSING SPONDYLITIS
     Dosage: 400 MILLIGRAM, EV 2 WEEKS(QOW)
     Route: 058
     Dates: start: 20180621, end: 2018
  2. CERTOLIZUMAB PEGOL ASP AUTOCLICKS [Suspect]
     Active Substance: CERTOLIZUMAB PEGOL
     Dosage: 200 MILLIGRAM, EV 2 WEEKS(QOW)
     Route: 058
     Dates: start: 201808

REACTIONS (4)
  - Dementia [Not Recovered/Not Resolved]
  - Joint lock [Unknown]
  - Product dose omission in error [Unknown]
  - Tendon pain [Not Recovered/Not Resolved]

NARRATIVE: CASE EVENT DATE: 202104
